FAERS Safety Report 6081154-0 (Version None)
Quarter: 2009Q1

REPORT INFORMATION
  Report Type: 
  Country: None (occurrence: None)
  Receive Date: 20090213
  Receipt Date: 20090130
  Transmission Date: 20090719
  Serious: Yes (Other)
  Sender: FDA-Public Use
  Company Number: JPI-P-005614

PATIENT
  Age: 40 Year
  Sex: Male

DRUGS (2)
  1. XYREM [Suspect]
     Indication: NARCOLEPSY
     Dosage: 4.5 GM (2.25 GM, 2 IN 1 D), ORAL
     Route: 048
     Dates: start: 20080218, end: 20080313
  2. MODAFINIL [Concomitant]

REACTIONS (10)
  - ABNORMAL DREAMS [None]
  - DYSKINESIA [None]
  - ENTEROVESICAL FISTULA [None]
  - FATIGUE [None]
  - HYPERHIDROSIS [None]
  - INFECTION [None]
  - INSOMNIA [None]
  - MIDDLE INSOMNIA [None]
  - SNORING [None]
  - SOMNOLENCE [None]
